FAERS Safety Report 9402659 (Version 1)
Quarter: 2013Q3

REPORT INFORMATION
  Report Type: Spontaneous
  Country: FR (occurrence: FR)
  Receive Date: 20130716
  Receipt Date: 20130716
  Transmission Date: 20140515
  Serious: Yes (Death, Hospitalization)
  Sender: FDA-Public Use
  Company Number: FR-ASTELLAS-2013EU005927

PATIENT
  Age: 55 Year
  Sex: Male

DRUGS (3)
  1. TACROLIMUS SYSTEMIC [Suspect]
     Indication: IMMUNOSUPPRESSANT DRUG THERAPY
     Dosage: UNK
     Route: 065
  2. MYCOPHENOLATE MOFETIL [Suspect]
     Indication: IMMUNOSUPPRESSANT DRUG THERAPY
     Dosage: 1 G, UNKNOWN/D
     Route: 065
  3. PREDNISONE [Suspect]
     Indication: IMMUNOSUPPRESSANT DRUG THERAPY
     Dosage: 5 MG, UNKNOWN/D
     Route: 065

REACTIONS (9)
  - Brain abscess [Fatal]
  - Cerebral fungal infection [Fatal]
  - Brain oedema [Fatal]
  - Pulmonary mass [Fatal]
  - Lymphadenopathy [Fatal]
  - Subcutaneous abscess [Fatal]
  - Peritoneal disorder [Fatal]
  - Coma [Fatal]
  - Intracranial pressure increased [Fatal]
